FAERS Safety Report 24220122 (Version 5)
Quarter: 2024Q4

REPORT INFORMATION
  Report Type: Spontaneous
  Country: CA (occurrence: CA)
  Receive Date: 20240817
  Receipt Date: 20241230
  Transmission Date: 20250115
  Serious: Yes (Other)
  Sender: CELLTRION
  Company Number: CA-PFIZER INC-202400034865

PATIENT

DRUGS (14)
  1. INFLECTRA [Suspect]
     Active Substance: INFLIXIMAB-DYYB
     Indication: Colitis ulcerative
     Dosage: 300 MG AT Q 0, 2, 6 AND 12 WEEKS THEN EVERY 6 WEEKS
     Route: 042
     Dates: start: 20240304
  2. INFLECTRA [Suspect]
     Active Substance: INFLIXIMAB-DYYB
     Dosage: 400 MG, EVER 5 WEEK
     Route: 042
     Dates: start: 20240322, end: 20240322
  3. INFLECTRA [Suspect]
     Active Substance: INFLIXIMAB-DYYB
     Dosage: 300 MG AT Q 0, 2, 6 AND 12 WEEKS THEN Q 6 WEEKS
     Route: 042
     Dates: start: 20240415
  4. INFLECTRA [Suspect]
     Active Substance: INFLIXIMAB-DYYB
     Dosage: 400 MG EVERY 5 WEEK (5 WEEKS AND 2 DAYS)
     Route: 042
     Dates: start: 20240522
  5. INFLECTRA [Suspect]
     Active Substance: INFLIXIMAB-DYYB
     Dosage: 500 MG, EVERY 4 WEEKS (REINDUCTION)
     Route: 042
     Dates: start: 20240611
  6. INFLECTRA [Suspect]
     Active Substance: INFLIXIMAB-DYYB
     Dosage: 500 MG EVERY 4 WEEKS
     Route: 042
     Dates: start: 20240624
  7. INFLECTRA [Suspect]
     Active Substance: INFLIXIMAB-DYYB
     Dosage: 500 MG, AFTER 2 WEEKS AND 2 DAYS (WEEK 6 REINDUCTION DOSE) HOWEVER INFUSED EARLY AS PER MD
     Route: 042
     Dates: start: 20240710, end: 20240710
  8. INFLECTRA [Suspect]
     Active Substance: INFLIXIMAB-DYYB
     Dosage: 500 MG EVERY 4 WEEKS [REINDUCTION, Q4 WEEKS]
     Route: 042
     Dates: start: 20240808
  9. INFLECTRA [Suspect]
     Active Substance: INFLIXIMAB-DYYB
     Dosage: 500 MG, REINDUCTION, Q4 WEEKS
     Route: 042
     Dates: start: 20240904
  10. INFLECTRA [Suspect]
     Active Substance: INFLIXIMAB-DYYB
     Dosage: 500 MG, EVERY 4 WEEKS
     Route: 042
     Dates: start: 20241002
  11. INFLECTRA [Suspect]
     Active Substance: INFLIXIMAB-DYYB
     Dosage: 500 MG, EVERY 4 WEEKS
     Route: 042
     Dates: start: 20241002
  12. INFLECTRA [Suspect]
     Active Substance: INFLIXIMAB-DYYB
     Dosage: 500 MG, AFTER 3 WEEKS 5 DAYS, (PRESCRIBED EVERY 4 WEEKS)
     Route: 042
     Dates: start: 20241028
  13. INFLECTRA [Suspect]
     Active Substance: INFLIXIMAB-DYYB
     Dosage: 600 MG, EVERY 4 WEEKS
     Route: 042
     Dates: start: 20241125
  14. INFLECTRA [Suspect]
     Active Substance: INFLIXIMAB-DYYB
     Dosage: 600 MG, AFTER 4 WEEKS (600 MG, EVERY 4 WEEKS)
     Route: 042
     Dates: start: 20241223

REACTIONS (8)
  - Condition aggravated [Recovered/Resolved]
  - Drug ineffective [Unknown]
  - Drug level decreased [Unknown]
  - Drug level above therapeutic [Unknown]
  - Malaise [Not Recovered/Not Resolved]
  - Weight increased [Unknown]
  - Off label use [Unknown]
  - Off label use [Unknown]

NARRATIVE: CASE EVENT DATE: 20240101
